FAERS Safety Report 8926838 (Version 1)
Quarter: 2012Q4

REPORT INFORMATION
  Report Type: 
  Country: US (occurrence: US)
  Receive Date: 20121127
  Receipt Date: 20121127
  Transmission Date: 20130627
  Serious: No
  Sender: FDA-Public Use
  Company Number: US-ELI_LILLY_AND_COMPANY-US201211005373

PATIENT
  Sex: Female

DRUGS (4)
  1. CYMBALTA [Suspect]
     Indication: BIPOLAR I DISORDER
     Dosage: 60 mg, qd
  2. CYMBALTA [Suspect]
     Dosage: 30 mg, UNK
  3. ZYPREXA [Suspect]
     Indication: BIPOLAR DISORDER
     Dosage: 10 mg, qd
  4. LAMICTAL [Concomitant]
     Dosage: 200 mg, qd

REACTIONS (3)
  - Weight increased [Unknown]
  - Hepatic enzyme increased [Unknown]
  - Off label use [Unknown]
